FAERS Safety Report 20131386 (Version 1)
Quarter: 2021Q4

REPORT INFORMATION
  Report Type: Spontaneous
  Country: US (occurrence: None)
  Receive Date: 20211130
  Receipt Date: 20211130
  Transmission Date: 20220303
  Serious: No
  Sender: FDA-Public Use
  Company Number: None

PATIENT
  Age: 37 Year
  Sex: Female
  Weight: 112.5 kg

DRUGS (5)
  1. ART NATURALS HAND SANITIZER [Suspect]
     Active Substance: ALCOHOL
     Indication: COVID-19 prophylaxis
     Dosage: OTHER QUANTITY : 1 1;?FREQUENCY : AS NEEDED;?
     Route: 061
     Dates: start: 20200401, end: 20211105
  2. GABAPENTIN [Concomitant]
     Active Substance: GABAPENTIN
  3. PRAZOSIN [Concomitant]
     Active Substance: PRAZOSIN
  4. VITAMIN B12 [Concomitant]
     Active Substance: CYANOCOBALAMIN
  5. CHOLECALCIFEROL [Concomitant]
     Active Substance: CHOLECALCIFEROL

REACTIONS (13)
  - Skin disorder [None]
  - Erythema [None]
  - Dermatitis [None]
  - Pain [None]
  - Rash [None]
  - Skin fissures [None]
  - Skin haemorrhage [None]
  - Skin injury [None]
  - Application site burn [None]
  - Quality of life decreased [None]
  - Recalled product [None]
  - Emotional distress [None]
  - Loss of personal independence in daily activities [None]

NARRATIVE: CASE EVENT DATE: 20200404
